FAERS Safety Report 9103589 (Version 1)
Quarter: 2013Q1

REPORT INFORMATION
  Report Type: Report from Study
  Country: JP (occurrence: JP)
  Receive Date: 20130219
  Receipt Date: 20130219
  Transmission Date: 20140127
  Serious: Yes (Other)
  Sender: FDA-Public Use
  Company Number: JP-GLAXOSMITHKLINE-B0868019A

PATIENT
  Age: 64 Year
  Sex: Female
  Weight: 55 kg

DRUGS (2)
  1. TYKERB [Suspect]
     Indication: BREAST CANCER
     Route: 048
     Dates: start: 20110112, end: 20111125
  2. XELODA [Suspect]
     Route: 048
     Dates: start: 20110112, end: 20111125

REACTIONS (2)
  - Eczema [Unknown]
  - Blood bilirubin increased [Recovering/Resolving]
